FAERS Safety Report 6934700-6 (Version None)
Quarter: 2010Q3

REPORT INFORMATION
  Report Type: 
  Country: None (occurrence: None)
  Receive Date: 20100820
  Receipt Date: 20100813
  Transmission Date: 20110219
  Serious: Yes (Hospitalization, Other)
  Sender: FDA-Public Use
  Company Number: US-AMGEN-KDC409841

PATIENT
  Age: 46 Year
  Sex: Male
  Weight: 80.5 kg

DRUGS (4)
  1. PANITUMUMAB [Suspect]
     Indication: OESOPHAGEAL CARCINOMA
     Route: 042
     Dates: start: 20100209
  2. CISPLATIN [Suspect]
     Route: 042
     Dates: start: 20100209
  3. DOCETAXEL [Suspect]
     Route: 042
     Dates: start: 20100209
  4. RADIATION THERAPY [Suspect]
     Dates: start: 20100209

REACTIONS (11)
  - ALANINE AMINOTRANSFERASE ABNORMAL [None]
  - ASPARTATE AMINOTRANSFERASE ABNORMAL [None]
  - DEHYDRATION [None]
  - DYSPHAGIA [None]
  - EMBOLISM ARTERIAL [None]
  - HAEMOGLOBIN ABNORMAL [None]
  - LYMPHOPENIA [None]
  - OESOPHAGEAL PERFORATION [None]
  - OESOPHAGITIS [None]
  - PNEUMONITIS [None]
  - THROMBOSIS [None]
